FAERS Safety Report 21229288 (Version 1)
Quarter: 2022Q3

REPORT INFORMATION
  Report Type: Report from Study
  Country: NL (occurrence: NL)
  Receive Date: 20220818
  Receipt Date: 20220818
  Transmission Date: 20221027
  Serious: Yes (Hospitalization)
  Sender: FDA-Public Use
  Company Number: NL-ABBVIE-22K-114-4506297-00

PATIENT
  Sex: Male

DRUGS (6)
  1. CARBIDOPA\LEVODOPA [Suspect]
     Active Substance: CARBIDOPA\LEVODOPA
     Indication: Parkinson^s disease
     Dosage: CD: 2.2  ML/H
     Route: 050
     Dates: start: 20220104, end: 2022
  2. CARBIDOPA\LEVODOPA [Suspect]
     Active Substance: CARBIDOPA\LEVODOPA
     Dosage: CND: 2.4 ML/H
     Route: 050
     Dates: start: 2022
  3. LEVODOPA/CARBIDOPA PCH RETARD [Concomitant]
     Indication: Product used for unknown indication
     Dosage: 100/25MG (AT 10 PM)
     Route: 048
     Dates: end: 20220104
  4. REQUIP [Concomitant]
     Active Substance: ROPINIROLE HYDROCHLORIDE
     Indication: Parkinson^s disease
     Dosage: 1 X 4 TABLETS IN THE MORNING
     Route: 048
  5. REQUIP [Concomitant]
     Active Substance: ROPINIROLE HYDROCHLORIDE
     Dosage: AT 10 PM
     Route: 048
  6. POLYETHYLENE GLYCOLS [Concomitant]
     Active Substance: POLYETHYLENE GLYCOLS
     Indication: Bowel movement irregularity

REACTIONS (1)
  - Gastric disorder [Not Recovered/Not Resolved]

NARRATIVE: CASE EVENT DATE: 20220801
